FAERS Safety Report 17429463 (Version 1)
Quarter: 2020Q1

REPORT INFORMATION
  Report Type: Spontaneous
  Country: US (occurrence: US)
  Receive Date: 20200218
  Receipt Date: 20200218
  Transmission Date: 20200409
  Serious: No
  Sender: FDA-Public Use
  Company Number: US-JNJFOC-20200223391

PATIENT
  Age: 71 Year
  Sex: Female
  Weight: 83.99 kg

DRUGS (2)
  1. XARELTO [Suspect]
     Active Substance: RIVAROXABAN
     Indication: THROMBOSIS
     Route: 048
     Dates: start: 202001
  2. XARELTO [Suspect]
     Active Substance: RIVAROXABAN
     Indication: PULMONARY EMBOLISM
     Route: 048
     Dates: start: 20200110, end: 202001

REACTIONS (3)
  - Paraesthesia [Not Recovered/Not Resolved]
  - Anxiety [Not Recovered/Not Resolved]
  - Fear [Not Recovered/Not Resolved]

NARRATIVE: CASE EVENT DATE: 202001
